FAERS Safety Report 9691718 (Version 2)
Quarter: 2013Q4

REPORT INFORMATION
  Report Type: Spontaneous
  Country: US (occurrence: US)
  Receive Date: 20131115
  Receipt Date: 20131122
  Transmission Date: 20140711
  Serious: Yes (Other)
  Sender: FDA-Public Use
  Company Number: US-B.I. PHARMACEUTICALS,INC./RIDGEFIELD-2013-BI-36994BP

PATIENT
  Age: 64 Year
  Sex: Male
  Weight: 181 kg

DRUGS (11)
  1. PRADAXA [Suspect]
     Indication: ATRIAL FIBRILLATION
     Dosage: 300 MG
     Dates: start: 20111021, end: 20131008
  2. HUMULIN [Concomitant]
     Dosage: 100 U
  3. LASIX [Concomitant]
     Dosage: 30 MG
  4. ABILIFY [Concomitant]
     Dosage: 5 MG
  5. MIRTAZAPINE [Concomitant]
     Dosage: 45 MG
  6. ASPIRIN [Concomitant]
     Dosage: 81 MG
  7. DILAUDID [Concomitant]
     Dosage: 16 MG
  8. SIMVASTATIN [Concomitant]
     Dosage: 40 AT BED TIME
  9. CYMBALTA [Concomitant]
     Dosage: 120 MG
  10. LISINOPRIL [Concomitant]
     Dosage: 5 MG
  11. PANTOPRAZOLE [Concomitant]
     Dosage: 40 MG

REACTIONS (1)
  - Pulmonary embolism [Recovered/Resolved]
